FAERS Safety Report 6795094-2 (Version None)
Quarter: 2010Q2

REPORT INFORMATION
  Report Type: 
  Country: None (occurrence: None)
  Receive Date: 20100625
  Receipt Date: 20100622
  Transmission Date: 20101027
  Serious: Yes (Death, Other)
  Sender: FDA-Public Use
  Company Number: PHHY2009GB18594

PATIENT
  Sex: Female

DRUGS (5)
  1. CLOZARIL [Suspect]
     Indication: SCHIZOPHRENIA
     Dosage: UNK
     Dates: start: 20050819
  2. CLOZARIL [Interacting]
     Dosage: 650 MG, UNK
     Dates: start: 20090501
  3. VENLAFAXINE [Interacting]
     Dosage: 225 MG, UNK
     Route: 048
     Dates: start: 20040101
  4. VALPROATE SODIUM [Concomitant]
     Indication: CONVULSION
     Dosage: 600 MG
     Dates: start: 20080101
  5. ATENOLOL [Concomitant]
     Dosage: 50 MG, UNK
     Route: 048
     Dates: start: 20080101

REACTIONS (4)
  - CIRCULATORY COLLAPSE [None]
  - CONVULSION [None]
  - DRUG INTERACTION [None]
  - DRUG TOXICITY [None]
